FAERS Safety Report 7002822-X (Version None)
Quarter: 2010Q3

REPORT INFORMATION
  Report Type: 
  Country: None (occurrence: None)
  Receive Date: 20100920
  Receipt Date: 20100909
  Transmission Date: 20110219
  Serious: Yes (Death)
  Sender: FDA-Public Use
  Company Number: US-BAXTER-2010BH023208

PATIENT
  Age: 21 Year
  Sex: Male

DRUGS (3)
  1. DIANEAL [Suspect]
     Indication: PERITONEAL DIALYSIS
     Route: 033
     Dates: start: 20100501, end: 20100716
  2. DIANEAL [Suspect]
     Route: 033
     Dates: start: 20100716, end: 20100801
  3. ANTIHYPERTENSIVES [Concomitant]
     Indication: BLOOD PRESSURE
     Route: 065
     Dates: start: 20100401

REACTIONS (3)
  - ASPHYXIA [None]
  - HEADACHE [None]
  - INJURY [None]
